FAERS Safety Report 7414039-5 (Version None)
Quarter: 2011Q2

REPORT INFORMATION
  Report Type: 
  Country: None (occurrence: None)
  Receive Date: 20110414
  Receipt Date: 20110406
  Transmission Date: 20111010
  Serious: No
  Sender: FDA-Public Use
  Company Number: US-BIOGENIDEC-2011BI013331

PATIENT
  Age: 27 Year
  Sex: Male

DRUGS (1)
  1. TYSABRI [Suspect]
     Indication: MULTIPLE SCLEROSIS
     Route: 042
     Dates: start: 20100701

REACTIONS (7)
  - MUSCULOSKELETAL PAIN [None]
  - BACK PAIN [None]
  - TREMOR [None]
  - PYREXIA [None]
  - FATIGUE [None]
  - ABDOMINAL DISCOMFORT [None]
  - FOOD POISONING [None]
